FAERS Safety Report 7279949-0 (Version None)
Quarter: 2011Q1

REPORT INFORMATION
  Report Type: 
  Country: None (occurrence: None)
  Receive Date: 20110208
  Receipt Date: 20110201
  Transmission Date: 20110831
  Serious: Yes (Hospitalization)
  Sender: FDA-Public Use
  Company Number: US-AMGEN-USASP2011006197

PATIENT
  Age: 38 Year
  Sex: Female

DRUGS (1)
  1. ENBREL [Suspect]
     Indication: RHEUMATOID ARTHRITIS
     Dosage: 25 MG, 2 TIMES/WK
     Dates: start: 19980920, end: 20101225

REACTIONS (7)
  - JOINT ARTHROPLASTY [None]
  - OSTEOMYELITIS [None]
  - LOWER LIMB FRACTURE [None]
  - JOINT DISLOCATION [None]
  - UPPER LIMB FRACTURE [None]
  - PATHOLOGICAL FRACTURE [None]
  - DEVICE DISLOCATION [None]
